FAERS Safety Report 17811823 (Version 1)
Quarter: 2020Q2

REPORT INFORMATION
  Report Type: Other
  Country: IT (occurrence: IT)
  Receive Date: 20200521
  Receipt Date: 20200521
  Transmission Date: 20200714
  Serious: Yes (Other)
  Sender: FDA-Public Use
  Company Number: IT-ASTELLAS-2020US017079

PATIENT
  Age: 72 Year
  Sex: Male

DRUGS (3)
  1. FOSFOMYCIN [Concomitant]
     Active Substance: FOSFOMYCIN
     Indication: CYSTITIS
     Route: 048
     Dates: start: 20200428, end: 20200429
  2. XTANDI [Suspect]
     Active Substance: ENZALUTAMIDE
     Indication: PROSTATE CANCER
     Route: 048
     Dates: start: 20200310, end: 20200502
  3. FENTANYL. [Concomitant]
     Active Substance: FENTANYL
     Indication: BONE PAIN
     Route: 062
     Dates: start: 20200407

REACTIONS (1)
  - Clonus [Recovered/Resolved]

NARRATIVE: CASE EVENT DATE: 20200430
